FAERS Safety Report 18231915 (Version 3)
Quarter: 2021Q1

REPORT INFORMATION
  Report Type: Spontaneous
  Country: US (occurrence: US)
  Receive Date: 20200904
  Receipt Date: 20210108
  Transmission Date: 20210419
  Serious: No
  Sender: FDA-Public Use
  Company Number: US-PFIZER INC-2020335463

PATIENT
  Age: 78 Year
  Sex: Female
  Weight: 47.63 kg

DRUGS (3)
  1. PANTOPRAZOLE [Concomitant]
     Active Substance: PANTOPRAZOLE
     Indication: GASTROOESOPHAGEAL REFLUX DISEASE
  2. ESTRING [Suspect]
     Active Substance: ESTRADIOL
     Indication: ATROPHIC VULVOVAGINITIS
     Dosage: 2 MG, EVERY 3 MONTHS
     Route: 067
  3. PANTOPRAZOLE [Concomitant]
     Active Substance: PANTOPRAZOLE
     Indication: GASTRITIS
     Dosage: 60 MG, DAILY(40MG IN THE AM AND 20MG IN THE PM)
     Route: 048

REACTIONS (3)
  - Device issue [Unknown]
  - Disease recurrence [Unknown]
  - Vulvovaginal mycotic infection [Unknown]
